FAERS Safety Report 7539609-5 (Version None)
Quarter: 2011Q2

REPORT INFORMATION
  Report Type: 
  Country: None (occurrence: None)
  Receive Date: 20110610
  Receipt Date: 20110601
  Transmission Date: 20111010
  Serious: Yes (Hospitalization, Other)
  Sender: FDA-Public Use
  Company Number: GB-JNJFOC-20110203261

PATIENT
  Sex: Male
  Weight: 83 kg

DRUGS (4)
  1. RITONAVIR [Concomitant]
     Dates: start: 20090522, end: 20090827
  2. PREZISTA [Suspect]
     Indication: HIV INFECTION
     Route: 048
     Dates: start: 20090522, end: 20090827
  3. ABACAVIR [Concomitant]
     Indication: ANTIRETROVIRAL THERAPY
     Route: 065
     Dates: start: 19981118
  4. VIDEX [Concomitant]
     Indication: ANTIRETROVIRAL THERAPY
     Route: 065
     Dates: start: 19981118

REACTIONS (5)
  - LYMPHADENOPATHY [None]
  - SYSTEMIC LUPUS ERYTHEMATOSUS RASH [None]
  - BACK PAIN [None]
  - MYALGIA [None]
  - PYREXIA [None]
